FAERS Safety Report 7696740 (Version 17)
Quarter: 2014Q3

REPORT INFORMATION
  Report Type: Report from Study
  Country: BR (occurrence: BR)
  Receive Date: 20101207
  Receipt Date: 20140805
  Transmission Date: 20150326
  Serious: Yes (Hospitalization, Other)
  Sender: FDA-Public Use
  Company Number: BR-ROCHE-745784

PATIENT
  Age: 39 Year
  Sex: Female
  Weight: 65 kg

DRUGS (30)
  1. EUTHYROX [Concomitant]
     Active Substance: LEVOTHYROXINE SODIUM
     Route: 065
  2. ACETAMINOPHEN. [Concomitant]
     Active Substance: ACETAMINOPHEN
     Indication: RHEUMATOID ARTHRITIS
     Dosage: ACETAMINOPHEN 400 MG, MAGISTRAL FORMULA
     Route: 065
  3. MABTHERA [Interacting]
     Active Substance: RITUXIMAB
     Indication: RHEUMATOID ARTHRITIS
     Route: 042
  4. LYRICA [Concomitant]
     Active Substance: PREGABALIN
     Route: 065
  5. MABTHERA [Interacting]
     Active Substance: RITUXIMAB
     Route: 042
  6. NISULID [Concomitant]
     Active Substance: NIMESULIDE
     Indication: RHEUMATOID ARTHRITIS
     Route: 065
  7. NISULID [Concomitant]
     Active Substance: NIMESULIDE
     Route: 065
  8. FAMOTIDINE. [Concomitant]
     Active Substance: FAMOTIDINE
     Indication: RHEUMATOID ARTHRITIS
     Dosage: FAMOTIDINE 20 MG, MAGISTRAL FORMULA
     Route: 065
  9. ACTEMRA [Interacting]
     Active Substance: TOCILIZUMAB
     Route: 042
  10. PREDNISONE. [Concomitant]
     Active Substance: PREDNISONE
     Dosage: DOSE REPORTED AS 4.5MG AND 10 MG
     Route: 065
  11. FOLIC ACID. [Concomitant]
     Active Substance: FOLIC ACID
     Route: 065
  12. ACTEMRA [Interacting]
     Active Substance: TOCILIZUMAB
     Route: 042
  13. MABTHERA [Interacting]
     Active Substance: RITUXIMAB
     Route: 042
  14. MABTHERA [Interacting]
     Active Substance: RITUXIMAB
     Route: 042
  15. ACTEMRA [Suspect]
     Active Substance: TOCILIZUMAB
     Indication: RHEUMATOID ARTHRITIS
     Dosage: ROUTE: ENDOVENOUS; FORM: INFUSION; DOSE: 500MG/INFUSION
     Route: 042
  16. ACTEMRA [Interacting]
     Active Substance: TOCILIZUMAB
     Route: 042
  17. DORMONID (BRAZIL) [Suspect]
     Active Substance: MIDAZOLAM MALEATE
     Indication: SEDATION
     Route: 065
  18. DIAZEPAM. [Suspect]
     Active Substance: DIAZEPAM
     Indication: SEDATION
     Route: 065
  19. PREDNISONE. [Concomitant]
     Active Substance: PREDNISONE
     Route: 065
  20. EUTHYROX [Concomitant]
     Active Substance: LEVOTHYROXINE SODIUM
     Indication: HYPOTHYROIDISM
     Dosage: START: MORE THAN 20 YEAR AGO
     Route: 065
  21. MODURETIC 5-50 [Concomitant]
     Active Substance: AMILORIDE HYDROCHLORIDE\HYDROCHLOROTHIAZIDE
     Route: 065
  22. PREDNISONE. [Concomitant]
     Active Substance: PREDNISONE
     Indication: RHEUMATOID ARTHRITIS
     Route: 065
  23. PREDNISONE. [Concomitant]
     Active Substance: PREDNISONE
     Dosage: PREDNISONE 1.5 MG, MAGISTRAL FORMULA
     Route: 065
  24. ARAVA [Concomitant]
     Active Substance: LEFLUNOMIDE
     Route: 065
  25. DIACEREIN [Concomitant]
     Active Substance: DIACEREIN
     Indication: RHEUMATOID ARTHRITIS
     Dosage: DIACEREIN 30 MG, MAGISTRAL FORMULA
     Route: 065
  26. FOLIC ACID. [Concomitant]
     Active Substance: FOLIC ACID
     Dosage: FOLIC ACID 0.5 MG, MAGISTRAL FORMULA
     Route: 065
  27. SOLU-MEDROL [Concomitant]
     Active Substance: METHYLPREDNISOLONE SODIUM SUCCINATE
     Indication: PREMEDICATION
  28. RIVOTRIL [Concomitant]
     Active Substance: CLONAZEPAM
  29. ACTEMRA [Interacting]
     Active Substance: TOCILIZUMAB
     Route: 042
  30. NISULID [Concomitant]
     Active Substance: NIMESULIDE
     Dosage: NIMESULIDE 50 MG,MAGISTRAL FORMULA
     Route: 065

REACTIONS (40)
  - Tendon injury [Recovered/Resolved]
  - Hypersensitivity [Unknown]
  - Urticaria [Unknown]
  - Malaise [Recovered/Resolved]
  - Rash [Recovered/Resolved]
  - Dyspnoea [Recovered/Resolved]
  - Bone lesion [Unknown]
  - Muscular weakness [Not Recovered/Not Resolved]
  - Fatigue [Unknown]
  - Infection [Not Recovered/Not Resolved]
  - Spinal pain [Unknown]
  - Paraesthesia [Recovered/Resolved]
  - Swelling [Not Recovered/Not Resolved]
  - Wrist deformity [Recovered/Resolved]
  - Urinary tract infection [Recovering/Resolving]
  - Pharyngitis [Recovering/Resolving]
  - Headache [Recovered/Resolved]
  - Drug ineffective [Unknown]
  - Hypokinesia [Recovering/Resolving]
  - Insomnia [Not Recovered/Not Resolved]
  - Joint swelling [Unknown]
  - Paraesthesia [Unknown]
  - Drug hypersensitivity [Recovered/Resolved]
  - Depression [Not Recovered/Not Resolved]
  - Arthralgia [Unknown]
  - Candida infection [Unknown]
  - Eye disorder [Unknown]
  - Hypothermia [Recovered/Resolved]
  - Dizziness [Recovered/Resolved]
  - Pain [Not Recovered/Not Resolved]
  - Joint range of motion decreased [Not Recovered/Not Resolved]
  - Arthropathy [Not Recovered/Not Resolved]
  - Tachycardia [Recovered/Resolved]
  - Heart rate increased [Unknown]
  - Nephrolithiasis [Not Recovered/Not Resolved]
  - Drug interaction [Unknown]
  - Nausea [Recovered/Resolved]
  - Nodule [Not Recovered/Not Resolved]
  - Pain in extremity [Recovering/Resolving]
  - Nasopharyngitis [Recovered/Resolved]

NARRATIVE: CASE EVENT DATE: 20091117
